FAERS Safety Report 20578543 (Version 2)
Quarter: 2022Q2

REPORT INFORMATION
  Report Type: Report from Study
  Country: CL (occurrence: CL)
  Receive Date: 20220310
  Receipt Date: 20220427
  Transmission Date: 20220721
  Serious: Yes (Hospitalization, Other)
  Sender: FDA-Public Use
  Company Number: CL-JNJFOC-20220311303

PATIENT
  Age: 59 Year
  Sex: Female

DRUGS (1)
  1. SIMPONI [Suspect]
     Active Substance: GOLIMUMAB
     Indication: Psoriatic arthropathy
     Route: 058
     Dates: start: 20210503

REACTIONS (6)
  - Pyelonephritis [Recovering/Resolving]
  - Renal failure [Recovering/Resolving]
  - Blood calcium increased [Recovering/Resolving]
  - Ankle fracture [Unknown]
  - Fall [Unknown]
  - Accident [Unknown]

NARRATIVE: CASE EVENT DATE: 20220201
